FAERS Safety Report 12574526 (Version 13)
Quarter: 2017Q4

REPORT INFORMATION
  Report Type: Report from Study
  Country: CA (occurrence: CA)
  Receive Date: 20160720
  Receipt Date: 20171205
  Transmission Date: 20180320
  Serious: Yes (Other)
  Sender: FDA-Public Use
  Company Number: CA-GLAXOSMITHKLINE-CA2016GSK096314

PATIENT
  Age: 73 Year
  Sex: Male

DRUGS (18)
  1. SIMPONI [Concomitant]
     Active Substance: GOLIMUMAB
  2. COSENTYX [Suspect]
     Active Substance: SECUKINUMAB
     Dosage: 300 MG, QMO
     Route: 058
     Dates: start: 20170528
  3. VASOTEC [Concomitant]
     Active Substance: ENALAPRIL MALEATE
  4. ENBREL [Concomitant]
     Active Substance: ETANERCEPT
  5. COSENTYX [Suspect]
     Active Substance: SECUKINUMAB
     Dosage: 150 MG, QMO
     Route: 058
     Dates: start: 20170227
  6. DICLOFENAC SODIUM. [Suspect]
     Active Substance: DICLOFENAC SODIUM
     Indication: PRODUCT USED FOR UNKNOWN INDICATION
     Route: 065
  7. COSENTYX [Suspect]
     Active Substance: SECUKINUMAB
     Indication: ANKYLOSING SPONDYLITIS
     Dosage: 150 MG, QW
     Route: 058
     Dates: start: 20160630, end: 20160721
  8. COSENTYX [Suspect]
     Active Substance: SECUKINUMAB
     Dosage: 150 MG, QMO
     Route: 058
     Dates: start: 20160728
  9. COSENTYX [Suspect]
     Active Substance: SECUKINUMAB
     Dosage: 300 MG, QMO
     Route: 058
     Dates: start: 20170728
  10. COUMADIN [Concomitant]
     Active Substance: WARFARIN SODIUM
  11. CELEBREX [Concomitant]
     Active Substance: CELECOXIB
  12. NAPROXEN. [Concomitant]
     Active Substance: NAPROXEN
  13. COSENTYX [Suspect]
     Active Substance: SECUKINUMAB
     Dosage: 150 MG, QMO
     Route: 058
     Dates: start: 20170428
  14. COSENTYX [Suspect]
     Active Substance: SECUKINUMAB
     Dosage: 300 MG, QMO
     Dates: start: 20171028
  15. GOLD [Concomitant]
     Active Substance: GOLD
  16. COSENTYX [Suspect]
     Active Substance: SECUKINUMAB
     Dosage: 150 MG, QMO
     Route: 058
     Dates: start: 20170127
  17. CRESTOR [Concomitant]
     Active Substance: ROSUVASTATIN CALCIUM
  18. PREDNISONE. [Concomitant]
     Active Substance: PREDNISONE

REACTIONS (16)
  - Lower respiratory tract infection [Recovering/Resolving]
  - Productive cough [Recovering/Resolving]
  - Tooth abscess [Recovered/Resolved]
  - Blood glucose increased [Unknown]
  - Arthralgia [Unknown]
  - Respiratory tract congestion [Unknown]
  - Gait disturbance [Unknown]
  - Arthritis [Unknown]
  - Nuchal rigidity [Unknown]
  - Muscle rigidity [Unknown]
  - Musculoskeletal discomfort [Unknown]
  - Back pain [Unknown]
  - Drug effect decreased [Unknown]
  - Haemoglobin decreased [Unknown]
  - Arthralgia [Recovered/Resolved]
  - Therapeutic response shortened [Unknown]

NARRATIVE: CASE EVENT DATE: 2016
